FAERS Safety Report 4980399-8 (Version None)
Quarter: 2006Q2

REPORT INFORMATION
  Report Type: 
  Country: None (occurrence: None)
  Receive Date: 20060421
  Receipt Date: 20060421
  Transmission Date: 20061013
  Serious: Yes (Hospitalization, Other)
  Sender: FDA-Public Use
  Company Number: None

PATIENT
  Age: 72 Year
  Sex: Male
  Weight: 79.6 kg

DRUGS (26)
  1. AMIODARONE HCL [Suspect]
     Indication: ARRHYTHMIA
     Dosage: 100MG TWO TIMES DAILY PO [CHRONIC, LONG-TERM]
     Route: 048
  2. AMIODARONE HCL [Suspect]
     Indication: CARDIOMYOPATHY
     Dosage: 100MG TWO TIMES DAILY PO [CHRONIC, LONG-TERM]
     Route: 048
  3. MEXILETINE HYDROCHLORIDE [Concomitant]
  4. DIGOXIN [Concomitant]
  5. POTASSIUM CHLORIDE [Concomitant]
  6. LEVOTHYROXINE SODIUM [Concomitant]
  7. MAGNESIUM CHLORIDE SR [Concomitant]
  8. ASPIRIN [Concomitant]
  9. MULTIPLE VITAMIN [Concomitant]
  10. METOLAZONE [Concomitant]
  11. SPIRONOLACTONE [Concomitant]
  12. ISOSORBIDE DINITRATE [Concomitant]
  13. SIMVASTATIN [Concomitant]
  14. CAPTOPRIL [Concomitant]
  15. ALLOPURINOL [Concomitant]
  16. FOLIC ACID [Concomitant]
  17. CYANOCOBALAMIN [Concomitant]
  18. PYRIDOXINE HCL [Concomitant]
  19. FERROUS SULFATE TAB [Concomitant]
  20. METOPROLOL SR [Concomitant]
  21. FUROSEMIDE [Concomitant]
  22. MILRINONE [Concomitant]
  23. ZOLPIDEM TARTRATE [Concomitant]
  24. NITROGLYCERIN SUBLINGUAL [Concomitant]
  25. HYDROXYZINE [Concomitant]
  26. ACETAMINOPHEN AND HYDROCODONE BITARTRATE [Concomitant]

REACTIONS (5)
  - ATRIAL FIBRILLATION [None]
  - DRUG TOXICITY [None]
  - DYSPNOEA [None]
  - LOBAR PNEUMONIA [None]
  - PULMONARY TOXICITY [None]
